FAERS Safety Report 23525022 (Version 1)
Quarter: 2024Q1

REPORT INFORMATION
  Report Type: Spontaneous
  Country: US (occurrence: US)
  Receive Date: 20240215
  Receipt Date: 20240215
  Transmission Date: 20240410
  Serious: No
  Sender: FDA-Public Use
  Company Number: US-SA-SAC20240208001093

PATIENT
  Age: 34 Year
  Sex: Female

DRUGS (9)
  1. DUPIXENT [Suspect]
     Active Substance: DUPILUMAB
     Indication: Dermatitis atopic
     Dosage: 300 MG, QOW
     Route: 058
     Dates: start: 20180131
  2. DIBASIC POTASSIUM PHOSPHATE [Concomitant]
     Active Substance: DIBASIC POTASSIUM PHOSPHATE
  3. ESCITALOPRAM [Concomitant]
     Active Substance: ESCITALOPRAM OXALATE
  4. MONTELUKAST [Concomitant]
     Active Substance: MONTELUKAST SODIUM
  5. FML FORTE [Concomitant]
     Active Substance: FLUOROMETHOLONE
  6. ERYTHROMYCIN [Concomitant]
     Active Substance: ERYTHROMYCIN
  7. TACROLIMUS [Concomitant]
     Active Substance: TACROLIMUS
  8. TRAZODONE [Concomitant]
     Active Substance: TRAZODONE HYDROCHLORIDE
  9. POLYTRIM [Concomitant]
     Active Substance: POLYMYXIN B SULFATE\TRIMETHOPRIM SULFATE

REACTIONS (7)
  - Paraesthesia oral [Unknown]
  - Asthenopia [Unknown]
  - Vision blurred [Unknown]
  - Human chorionic gonadotropin positive [Unknown]
  - Dermatitis atopic [Unknown]
  - Product dose omission issue [Unknown]
  - Skin burning sensation [Unknown]
